FAERS Safety Report 9911842 (Version 1)
Quarter: 2014Q1

REPORT INFORMATION
  Report Type: Spontaneous
  Country: US (occurrence: US)
  Receive Date: 20140219
  Receipt Date: 20140219
  Transmission Date: 20141002
  Serious: No
  Sender: FDA-Public Use
  Company Number: US-GILEAD-2014-0094702

PATIENT
  Age: 60 Year
  Sex: Female

DRUGS (1)
  1. SOVALDI [Suspect]
     Indication: CHRONIC HEPATITIS C
     Dosage: 400 MG, UNK
     Route: 065
     Dates: start: 20140101

REACTIONS (3)
  - Nervousness [Unknown]
  - Feeling cold [Unknown]
  - Unevaluable event [Unknown]
